FAERS Safety Report 25146874 (Version 3)
Quarter: 2025Q2

REPORT INFORMATION
  Report Type: Report from Study
  Country: US (occurrence: US)
  Receive Date: 20250401
  Receipt Date: 20250421
  Transmission Date: 20250716
  Serious: Yes (Hospitalization)
  Sender: EISAI
  Company Number: US-Eisai-EC-2025-184569

PATIENT
  Age: 66 Year
  Sex: Male

DRUGS (6)
  1. LENVIMA [Suspect]
     Active Substance: LENVATINIB
     Indication: Renal cell carcinoma
     Dosage: STOPPED: FEB//2025
     Dates: start: 20250218
  2. LENVIMA [Suspect]
     Active Substance: LENVATINIB
     Dates: start: 202503, end: 202503
  3. LENVIMA [Suspect]
     Active Substance: LENVATINIB
     Dates: start: 202503, end: 20250310
  4. LOSARTAN [Concomitant]
     Active Substance: LOSARTAN
     Dates: end: 2025
  5. LOSARTAN [Concomitant]
     Active Substance: LOSARTAN
     Dates: start: 2025
  6. LORAZEPAM [Concomitant]
     Active Substance: LORAZEPAM

REACTIONS (14)
  - Cerebral haemorrhage [Recovering/Resolving]
  - Hypertensive emergency [Recovered/Resolved with Sequelae]
  - Epistaxis [Unknown]
  - Headache [Recovering/Resolving]
  - Brain fog [Not Recovered/Not Resolved]
  - Fatigue [Not Recovered/Not Resolved]
  - Pain in extremity [Not Recovered/Not Resolved]
  - Paraesthesia [Not Recovered/Not Resolved]
  - Burning sensation [Not Recovered/Not Resolved]
  - Hypertension [Recovering/Resolving]
  - Product packaging difficult to open [Unknown]
  - Nausea [Not Recovered/Not Resolved]
  - Dizziness [Not Recovered/Not Resolved]
  - Confusional state [Recovered/Resolved]

NARRATIVE: CASE EVENT DATE: 20250201
